FAERS Safety Report 8166405 (Version 7)
Quarter: 2020Q1

REPORT INFORMATION
  Report Type: Spontaneous
  Country: GB (occurrence: GB)
  Receive Date: 20110920
  Receipt Date: 20200323
  Transmission Date: 20200409
  Serious: Yes (Life-Threatening, Hospitalization, Disabling, Other)
  Sender: FDA-Public Use
  Company Number: GB-ACCORD-010561

PATIENT
  Age: 31 Year
  Sex: Female
  Weight: 63.5 kg

DRUGS (13)
  1. MIRTAZAPINE. [Interacting]
     Active Substance: MIRTAZAPINE
     Indication: DEPRESSION
     Dosage: DOSAGE FORM : UNSPECIFIED, 30 MG IN THE DAY AND 15 MG AT NIGHT
     Route: 048
     Dates: start: 20101007, end: 20101012
  2. CODEINE [Interacting]
     Active Substance: CODEINE
     Indication: ANALGESIC THERAPY
     Dosage: DOSAGE FORM : UNSPECIFIED, 15-30 MG
     Route: 048
     Dates: start: 20110615, end: 20110723
  3. PAROXETINE. [Interacting]
     Active Substance: PAROXETINE
     Indication: DEPRESSION
     Route: 048
     Dates: start: 19990801, end: 20110706
  4. DOMPERIDONE [Interacting]
     Active Substance: DOMPERIDONE
     Indication: PRODUCT USED FOR UNKNOWN INDICATION
     Dosage: DOSAGE FORM : UNSPECIFIED
  5. DIAZEPAM. [Interacting]
     Active Substance: DIAZEPAM
     Indication: MUSCLE SPASMS
     Dosage: DOSAGE FORM : UNSPECIFIED
     Route: 065
     Dates: start: 20110725
  6. OMEPRAZOLE. [Interacting]
     Active Substance: OMEPRAZOLE
     Indication: DYSPEPSIA
     Dosage: 20 MG PER DAY?DOSAGE FORM : UNSPECIFIED
     Route: 065
     Dates: start: 20110525
  7. TRAMADOL/TRAMADOL HYDROCHLORIDE [Interacting]
     Active Substance: TRAMADOL HYDROCHLORIDE
     Indication: NECK PAIN
     Dosage: DOSAGE FORM : UNSPECIFIED, DISCONTINUED AFTRE 4 OR 5 DAYS
     Route: 048
     Dates: start: 20081201, end: 20101210
  8. AMITRIPTYLINE [Suspect]
     Active Substance: AMITRIPTYLINE
     Indication: MUSCLE SPASMS
     Dosage: DOSGAE FORM : UNSPECIFIED
     Route: 065
     Dates: start: 20110810
  9. SEROXAT [Interacting]
     Active Substance: PAROXETINE HYDROCHLORIDE
     Indication: DEPRESSION
     Dosage: 20 MG THREE TIMES PER DAY?SEROXAT WAS AGAIN STARTED FROMMAY-2011 TO 6-JUL-2011
     Route: 048
     Dates: start: 19990801, end: 201105
  10. QUETIAPINE. [Interacting]
     Active Substance: QUETIAPINE
     Indication: PSYCHOTIC DISORDER
     Route: 048
     Dates: start: 20110224, end: 20110506
  11. PROCYCLIDINE [Interacting]
     Active Substance: PROCYCLIDINE
     Indication: EXTRAPYRAMIDAL DISORDER
     Dosage: PROCYCLIDINE ALSO TAKEN FROM 1995 TO 1996 FOR OCULOGYRIC CRISIS?DOSAGE FORM : UNSPECIFIED
     Route: 048
     Dates: start: 20110324, end: 20110506
  12. LORAZEPAM. [Interacting]
     Active Substance: LORAZEPAM
     Indication: SEDATION
     Dosage: DOSAGE FORM : UNSPECIFIED
     Route: 048
     Dates: start: 20110224, end: 20110410
  13. CLONAZEPAM. [Interacting]
     Active Substance: CLONAZEPAM
     Indication: SEDATION
     Dosage: DOSAGE FORM : UNSPECIFIED
     Route: 048
     Dates: start: 20110224, end: 20110410

REACTIONS (42)
  - Toxicity to various agents [Unknown]
  - Off label use [Unknown]
  - Malaise [Unknown]
  - Cyanosis [Unknown]
  - Decreased appetite [Unknown]
  - Arthralgia [Unknown]
  - Fatigue [Unknown]
  - Urinary retention [Unknown]
  - Pallor [Unknown]
  - Speech disorder [Unknown]
  - Dizziness [Unknown]
  - Pruritus [Unknown]
  - Exposure during pregnancy [Unknown]
  - Drug withdrawal syndrome [Unknown]
  - Contusion [Unknown]
  - Delirium [Unknown]
  - Gastric pH decreased [Unknown]
  - Eye pain [Unknown]
  - Seizure [Unknown]
  - Drooling [Unknown]
  - Menstrual disorder [Unknown]
  - Dissociation [Not Recovered/Not Resolved]
  - Schizophrenia [Unknown]
  - H1N1 influenza [Unknown]
  - Hypoaesthesia [Not Recovered/Not Resolved]
  - Nightmare [Unknown]
  - Paraesthesia [Unknown]
  - Drug interaction [Unknown]
  - Premature labour [Unknown]
  - Swelling face [Unknown]
  - Blood sodium decreased [Unknown]
  - Hypoaesthesia oral [Unknown]
  - Neuroleptic malignant syndrome [Unknown]
  - Serotonin syndrome [Not Recovered/Not Resolved]
  - Paralysis [Unknown]
  - Swollen tongue [Unknown]
  - Incontinence [Unknown]
  - Vomiting [Unknown]
  - Visual impairment [Unknown]
  - Skin discolouration [Not Recovered/Not Resolved]
  - Parosmia [Unknown]
  - Dystonia [Unknown]

NARRATIVE: CASE EVENT DATE: 2008
